FAERS Safety Report 5007028-1 (Version None)
Quarter: 2006Q2

REPORT INFORMATION
  Report Type: 
  Country: None (occurrence: None)
  Receive Date: 20060517
  Receipt Date: 20060428
  Transmission Date: 20061013
  Serious: Yes (Other)
  Sender: FDA-Public Use
  Company Number: GB200604001851

PATIENT
  Age: 72 Year
  Sex: Female
  Weight: 64 kg

DRUGS (7)
  1. FORTEO [Suspect]
     Indication: OSTEOPOROSIS
     Dosage: 20 UG, DAILY (1/D), SUBCUTANEOUS
     Route: 058
     Dates: start: 20050927
  2. FORTEO [Concomitant]
  3. OMEPRAZOLE (OMEPRAZLE) [Concomitant]
  4. GAVISCON (SODIUM ALGINAE, SODIUM BICARBONATE) [Concomitant]
  5. VALSARTAN [Concomitant]
  6. ATENOLOL [Concomitant]
  7. ADCAL-D3 (CALCIUM CARBONATE, COLECALCIFEROL) [Concomitant]

REACTIONS (16)
  - DIZZINESS [None]
  - EYELID DISORDER [None]
  - FEELING COLD [None]
  - GOITRE [None]
  - HORNER'S SYNDROME [None]
  - HYSTERECTOMY [None]
  - INTERVERTEBRAL DISC SPACE NARROWING [None]
  - MUSCULAR WEAKNESS [None]
  - NECK PAIN [None]
  - OSTEOARTHRITIS [None]
  - PARAESTHESIA [None]
  - PELVIC FLOOR REPAIR [None]
  - POST PROCEDURAL COMPLICATION [None]
  - SPONDYLITIS [None]
  - VASCULAR CALCIFICATION [None]
  - VISUAL DISTURBANCE [None]
